FAERS Safety Report 8102956-2 (Version None)
Quarter: 2012Q1

REPORT INFORMATION
  Report Type: 
  Country: None (occurrence: None)
  Receive Date: 20120201
  Receipt Date: 20120124
  Transmission Date: 20120608
  Serious: Yes (Hospitalization)
  Sender: FDA-Public Use
  Company Number: US-ASTELLAS-2012US000813

PATIENT
  Sex: Female

DRUGS (1)
  1. ERLOTINIB HYDROCHLORIDE [Suspect]
     Indication: LUNG NEOPLASM MALIGNANT
     Dosage: 25 MG, UNKNOWN/D
     Route: 048
     Dates: start: 20110131

REACTIONS (4)
  - HOSPITALISATION [None]
  - INCORRECT DOSE ADMINISTERED [None]
  - STAPHYLOCOCCAL SKIN INFECTION [None]
  - URINARY TRACT INFECTION [None]
